FAERS Safety Report 25824572 (Version 1)
Quarter: 2025Q3

REPORT INFORMATION
  Report Type: Spontaneous
  Country: US (occurrence: None)
  Receive Date: 20250919
  Receipt Date: 20250919
  Transmission Date: 20251021
  Serious: Yes (Hospitalization)
  Sender: FDA-CTU
  Company Number: None

PATIENT
  Age: 61 Year
  Sex: Female
  Weight: 72 kg

DRUGS (1)
  1. ZEPBOUND [Suspect]
     Active Substance: TIRZEPATIDE
     Indication: Weight control
     Dosage: OTHER QUANTITY : 1 INJECTION;?OTHER FREQUENCY : WEEKLY;?
     Route: 058

REACTIONS (4)
  - Lipase increased [None]
  - Abdominal pain [None]
  - Therapy cessation [None]
  - Therapy change [None]

NARRATIVE: CASE EVENT DATE: 20250120
